FAERS Safety Report 23871954 (Version 2)
Quarter: 2024Q2

REPORT INFORMATION
  Report Type: Spontaneous
  Country: CO (occurrence: CO)
  Receive Date: 20240520
  Receipt Date: 20240523
  Transmission Date: 20240716
  Serious: Yes (Death, Hospitalization)
  Sender: FDA-Public Use
  Company Number: CO-AMGEN-COLSP2024094474

PATIENT

DRUGS (3)
  1. ADALIMUMAB [Suspect]
     Active Substance: ADALIMUMAB\ISOPROPYL ALCOHOL
     Indication: Psoriasis
     Dosage: \UNK, Q3WK (EVERY 21 DAYS)
     Route: 065
  2. ADALIMUMAB [Suspect]
     Active Substance: ADALIMUMAB\ISOPROPYL ALCOHOL
     Dosage: UNK, QMO (EVERY 30 DAYS)
     Route: 065
  3. ADALIMUMAB [Suspect]
     Active Substance: ADALIMUMAB\ISOPROPYL ALCOHOL
     Dosage: UNK (EVERY 45 DAYS)
     Route: 065

REACTIONS (7)
  - Death [Fatal]
  - Hepatic cancer metastatic [Fatal]
  - Accident [Unknown]
  - Drug ineffective [Unknown]
  - Off label use [Unknown]
  - Therapy cessation [Unknown]
  - Psoriasis [Unknown]
